FAERS Safety Report 16339790 (Version 3)
Quarter: 2020Q3

REPORT INFORMATION
  Report Type: Report from Study
  Country: US (occurrence: US)
  Receive Date: 20190521
  Receipt Date: 20200713
  Transmission Date: 20201102
  Serious: Yes (Hospitalization)
  Sender: FDA-Public Use
  Company Number: US-ACTELION-A-NJ2019-190676

PATIENT
  Sex: Female
  Weight: 70.3 kg

DRUGS (15)
  1. COLCHICINE. [Concomitant]
     Active Substance: COLCHICINE
  2. CHLORIDE [Concomitant]
     Active Substance: CHLORIDE ION
  3. UPTRAVI [Suspect]
     Active Substance: SELEXIPAG
     Indication: PULMONARY ARTERIAL HYPERTENSION
     Dosage: 800 MCG, BID
     Route: 048
  4. METOLAZONE. [Concomitant]
     Active Substance: METOLAZONE
  5. UPTRAVI [Suspect]
     Active Substance: SELEXIPAG
     Dosage: 200 MCG, BID
     Route: 048
  6. GABAPENTIN. [Concomitant]
     Active Substance: GABAPENTIN
  7. POTASSIUM [Concomitant]
     Active Substance: POTASSIUM
  8. ADEMPAS [Concomitant]
     Active Substance: RIOCIGUAT
  9. ZALEPLON. [Concomitant]
     Active Substance: ZALEPLON
  10. DILTIAZEM. [Concomitant]
     Active Substance: DILTIAZEM
  11. WARFARIN [Concomitant]
     Active Substance: WARFARIN
  12. BUMETANIDE. [Concomitant]
     Active Substance: BUMETANIDE
  13. CETIRIZINE HCL [Concomitant]
     Active Substance: CETIRIZINE HYDROCHLORIDE
  14. OPSUMIT [Suspect]
     Active Substance: MACITENTAN
     Indication: PULMONARY ARTERIAL HYPERTENSION
     Dosage: 10 MG, QD
     Route: 048
     Dates: start: 20171010
  15. NORCO [Concomitant]
     Active Substance: ACETAMINOPHEN\HYDROCODONE BITARTRATE

REACTIONS (4)
  - Hospitalisation [Unknown]
  - Gout [Recovering/Resolving]
  - Malaise [Unknown]
  - Product dose omission issue [Unknown]
